FAERS Safety Report 25144813 (Version 3)
Quarter: 2025Q3

REPORT INFORMATION
  Report Type: Spontaneous
  Country: US (occurrence: US)
  Receive Date: 20250401
  Receipt Date: 20250827
  Transmission Date: 20251020
  Serious: Yes (Other)
  Sender: TAKEDA
  Company Number: US-TAKEDA-US201940580

PATIENT
  Sex: Female

DRUGS (6)
  1. TAKHZYRO [Suspect]
     Active Substance: LANADELUMAB-FLYO
     Indication: Hereditary angioedema
  2. TAKHZYRO [Suspect]
     Active Substance: LANADELUMAB-FLYO
     Indication: Immune system disorder
     Dosage: 300 MILLIGRAM, Q2WEEKS
  3. TAKHZYRO [Suspect]
     Active Substance: LANADELUMAB-FLYO
     Dosage: 300 MILLIGRAM, Q4WEEKS
  4. FIRAZYR [Suspect]
     Active Substance: ICATIBANT ACETATE
     Indication: Product used for unknown indication
  5. FIRAZYR [Suspect]
     Active Substance: ICATIBANT ACETATE
  6. FIRAZYR [Suspect]
     Active Substance: ICATIBANT ACETATE

REACTIONS (4)
  - Hyperparathyroidism [Unknown]
  - Osteoporosis [Unknown]
  - Pain [Unknown]
  - Burning sensation [Unknown]
